FAERS Safety Report 8079778-4 (Version None)
Quarter: 2012Q1

REPORT INFORMATION
  Report Type: 
  Country: None (occurrence: None)
  Receive Date: 20120128
  Receipt Date: 20110720
  Transmission Date: 20120608
  Serious: No
  Sender: FDA-Public Use
  Company Number: US-ABBOTT-11P-163-0840454-00

PATIENT
  Sex: Female

DRUGS (6)
  1. ERYTHROMYCIN [Concomitant]
     Indication: INFECTION PROPHYLAXIS
  2. ARMODAFINIL [Concomitant]
     Indication: INFECTION PROPHYLAXIS
  3. LEVAQUIN [Concomitant]
     Indication: INFECTION PROPHYLAXIS
  4. COLACE [Concomitant]
     Indication: PRODUCT USED FOR UNKNOWN INDICATION
  5. HUMIRA [Suspect]
     Indication: RHEUMATOID ARTHRITIS
  6. PREDNISONE TAB [Concomitant]
     Indication: RHEUMATOID ARTHRITIS

REACTIONS (1)
  - RASH [None]
